FAERS Safety Report 5845553-1 (Version None)
Quarter: 2008Q3

REPORT INFORMATION
  Report Type: 
  Country: None (occurrence: None)
  Receive Date: 20080814
  Receipt Date: 20080807
  Transmission Date: 20090109
  Serious: Yes (Other)
  Sender: FDA-Public Use
  Company Number: US-ASTRAZENECA-2008UW15650

PATIENT
  Age: 62 Year
  Sex: Female

DRUGS (1)
  1. FASLODEX [Suspect]
     Indication: BREAST CANCER METASTATIC
     Dosage: 250 MG
     Route: 030

REACTIONS (5)
  - BLOOD PRESSURE IMMEASURABLE [None]
  - DIZZINESS [None]
  - HYPOTONIA [None]
  - PALLOR [None]
  - PULSE PRESSURE DECREASED [None]
